FAERS Safety Report 7111582-3 (Version None)
Quarter: 2010Q4

REPORT INFORMATION
  Report Type: 
  Country: None (occurrence: None)
  Receive Date: 20101118
  Receipt Date: 20101116
  Transmission Date: 20110411
  Serious: Yes (Other)
  Sender: FDA-Public Use
  Company Number: BR-PFIZER INC-2010109306

PATIENT
  Age: 54 Year
  Sex: Female
  Weight: 72 kg

DRUGS (17)
  1. CHAMPIX [Suspect]
     Indication: TOBACCO USER
     Dosage: 1 MG, 2X/DAY
     Route: 048
     Dates: start: 20100101, end: 20100101
  2. CHAMPIX [Suspect]
     Dosage: 1 MG, 2X/DAY (EVERY 12 HOURS)
     Route: 048
     Dates: start: 20100101
  3. BROMAZEPAM/SULPIRIDE [Concomitant]
     Indication: DEPRESSION
     Dosage: UNK
  4. LEXOTAN [Concomitant]
     Indication: DEPRESSION
     Dosage: UNK
     Dates: start: 19820101
  5. RIVOTRIL [Concomitant]
     Indication: DEPRESSION
     Dosage: 3X/DAY
     Dates: start: 20000101
  6. RIVOTRIL [Concomitant]
     Indication: NERVOUS SYSTEM DISORDER
  7. SUSTRATE [Concomitant]
     Indication: CARDIAC DISORDER
     Dosage: 3X/DAY (EVERY 8 HOURS)
     Dates: start: 20080101
  8. SUSTRATE [Concomitant]
     Indication: ARRHYTHMIA
  9. VASTAREL [Concomitant]
     Indication: CARDIAC DISORDER
     Dosage: 3X/DAY
     Dates: start: 20080101
  10. LIPIDIL [Concomitant]
     Indication: CARDIAC DISORDER
     Dosage: UNK
     Dates: start: 20080101
  11. LIPIDIL [Concomitant]
     Indication: ARRHYTHMIA
  12. LIPITOR [Concomitant]
     Indication: CARDIAC DISORDER
     Dosage: UNK
     Dates: start: 20080101
  13. LIPITOR [Concomitant]
     Indication: BLOOD CHOLESTEROL
  14. ATENOLOL [Concomitant]
     Indication: CARDIAC DISORDER
     Dosage: UNK
     Dates: start: 20080101
  15. OMEPRAZOLE [Concomitant]
     Indication: GASTRITIS
     Dosage: UNK
  16. AMOXICILLIN [Concomitant]
     Dosage: UNK
  17. TYLENOL (CAPLET) [Concomitant]
     Dosage: UNK

REACTIONS (1)
  - NERVOUSNESS [None]
